FAERS Safety Report 6944353-9 (Version None)
Quarter: 2010Q3

REPORT INFORMATION
  Report Type: 
  Country: None (occurrence: None)
  Receive Date: 20100827
  Receipt Date: 20100818
  Transmission Date: 20110219
  Serious: No
  Sender: FDA-Public Use
  Company Number: 2009BI013817

PATIENT
  Sex: Male

DRUGS (3)
  1. TYSABRI [Suspect]
     Indication: MULTIPLE SCLEROSIS
     Route: 042
     Dates: start: 20080404
  2. BENADRYL [Concomitant]
     Indication: PREMEDICATION
     Dates: start: 20080501
  3. NAPROXEN [Concomitant]
     Indication: PREMEDICATION
     Dates: start: 20080501

REACTIONS (14)
  - ASTHENIA [None]
  - BALANCE DISORDER [None]
  - BURNING SENSATION [None]
  - CHILLS [None]
  - FATIGUE [None]
  - FOOT FRACTURE [None]
  - GAIT DISTURBANCE [None]
  - HYPERSENSITIVITY [None]
  - MOBILITY DECREASED [None]
  - MUSCLE TIGHTNESS [None]
  - MYALGIA [None]
  - OEDEMA PERIPHERAL [None]
  - PAIN [None]
  - PAIN IN EXTREMITY [None]
